FAERS Safety Report 7545351 (Version 4)
Quarter: 2013Q2

REPORT INFORMATION
  Report Type: Report from Study
  Country: JP (occurrence: JP)
  Receive Date: 20100818
  Receipt Date: 20130418
  Transmission Date: 20140414
  Serious: Yes (Death, Life-Threatening, Hospitalization, Other)
  Sender: FDA-Public Use
  Company Number: JP-GENZYME-THYM-1001759

PATIENT
  Age: 50 Year
  Sex: Female
  Weight: 42 kg

DRUGS (46)
  1. THYMOGLOBULIN [Suspect]
     Indication: BONE MARROW CONDITIONING REGIMEN
     Dosage: 50 MG, QD
     Route: 042
     Dates: start: 20090426, end: 20090429
  2. THYMOGLOBULIN [Suspect]
     Indication: ACUTE GRAFT VERSUS HOST DISEASE
     Dosage: 40 MG, QD
     Route: 042
     Dates: start: 20091002, end: 20091003
  3. THYMOGLOBULIN [Suspect]
     Dosage: 50 MG, OVER 6 HOURS
     Route: 065
     Dates: start: 20091124, end: 20091124
  4. THYMOGLOBULIN [Suspect]
     Dosage: 40 MG, QD
     Route: 042
     Dates: start: 20091211, end: 20091213
  5. FLUDARA [Concomitant]
     Indication: BONE MARROW CONDITIONING REGIMEN
     Dosage: UNK
     Route: 065
     Dates: start: 20090423, end: 20090428
  6. FLUDARA [Concomitant]
     Dosage: UNK
     Route: 065
     Dates: start: 20090928, end: 20091003
  7. FLUDARA [Concomitant]
     Dosage: UNK
     Route: 065
     Dates: start: 20091206, end: 20091211
  8. CYTARABINE [Concomitant]
     Indication: BONE MARROW CONDITIONING REGIMEN
     Dosage: UNK
     Route: 065
     Dates: start: 20090423, end: 20090426
  9. CYTARABINE [Concomitant]
     Dosage: UNK
     Route: 065
     Dates: start: 20090928, end: 20090929
  10. CYTARABINE [Concomitant]
     Dosage: UNK
     Route: 065
     Dates: start: 20091206, end: 20091209
  11. CORTICOSTEROID NOS [Concomitant]
     Indication: BONE MARROW CONDITIONING REGIMEN
     Dosage: UNK
     Route: 065
     Dates: start: 20090423, end: 20090430
  12. MELPHALAN [Concomitant]
     Indication: BONE MARROW CONDITIONING REGIMEN
     Dosage: UNK
     Route: 065
     Dates: start: 20090427, end: 20090428
  13. MELPHALAN [Concomitant]
     Dosage: UNK
     Route: 065
     Dates: start: 20090930, end: 20091001
  14. MELPHALAN [Concomitant]
     Dosage: UNK
     Route: 065
     Dates: start: 20091210, end: 20091211
  15. ITRACONAZOLE [Concomitant]
     Indication: ANTIFUNGAL PROPHYLAXIS
     Dosage: UNK
     Route: 065
     Dates: start: 20090925, end: 20091016
  16. CIPROFLOXACIN HYDROCHLORIDE [Concomitant]
     Indication: INFECTION PROPHYLAXIS
     Dosage: UNK
     Route: 065
     Dates: start: 20090930, end: 20091015
  17. TACROLIMUS [Concomitant]
     Indication: PROPHYLAXIS AGAINST GRAFT VERSUS HOST DISEASE
     Dosage: UNK
     Route: 065
     Dates: start: 20090427
  18. TACROLIMUS [Concomitant]
     Dosage: UNK
     Route: 065
     Dates: start: 20090909, end: 20100122
  19. TACROLIMUS [Concomitant]
     Dosage: UNK
     Route: 065
     Dates: start: 20091002
  20. FILGRASTIM [Concomitant]
     Indication: BONE MARROW CONDITIONING REGIMEN
     Dosage: UNK
     Route: 065
     Dates: start: 20090423, end: 20090426
  21. MICAFUNGIN SODIUM [Concomitant]
     Indication: ANTIFUNGAL PROPHYLAXIS
     Dosage: UNK
     Route: 065
     Dates: start: 20091030, end: 20091217
  22. MICAFUNGIN SODIUM [Concomitant]
     Indication: INFECTION PROPHYLAXIS
  23. CEFOZOPRAN HYDROCHLORIDE [Concomitant]
     Indication: INFECTION PROPHYLAXIS
     Dosage: UNK
     Route: 065
     Dates: start: 20091010, end: 20100122
  24. PIPERACILLIN W [Concomitant]
     Indication: INFECTION PROPHYLAXIS
     Dosage: UNK
     Route: 065
     Dates: start: 20091017, end: 20100114
  25. LEVOFLOXACIN [Concomitant]
     Indication: INFECTION PROPHYLAXIS
     Dosage: UNK
     Route: 065
     Dates: start: 20091106, end: 20091107
  26. ZOSYN [Concomitant]
     Indication: PRODUCT USED FOR UNKNOWN INDICATION
     Dosage: UNK
     Route: 065
     Dates: start: 20091120, end: 20091126
  27. DORIPENEM HYDRATE [Concomitant]
     Indication: INFECTION PROPHYLAXIS
     Dosage: UNK
     Route: 065
     Dates: start: 20090920, end: 20091015
  28. METHYLPREDNISOLONE [Concomitant]
     Indication: PROPHYLAXIS AGAINST GRAFT VERSUS HOST DISEASE
     Dosage: UNK
     Route: 065
     Dates: start: 20090830, end: 20100122
  29. METHYLPREDNISOLONE [Concomitant]
     Indication: PREMEDICATION
     Dosage: UNK
     Route: 065
     Dates: start: 20090830
  30. MEROPENEM TRIHYDRATE [Concomitant]
     Indication: INFECTION PROPHYLAXIS
     Dosage: UNK
     Route: 065
     Dates: start: 20091127, end: 20091231
  31. VORICONAZOLE [Concomitant]
     Indication: ANTIFUNGAL PROPHYLAXIS
     Dosage: UNK
     Route: 065
     Dates: start: 20091218, end: 20100103
  32. VORICONAZOLE [Concomitant]
     Indication: INFECTION PROPHYLAXIS
  33. GANCICLOVIR [Concomitant]
     Indication: INFECTION PROPHYLAXIS
     Dosage: UNK
     Route: 065
     Dates: start: 20091025, end: 20091213
  34. GANCICLOVIR [Concomitant]
     Dosage: UNK
     Route: 065
     Dates: start: 20090105, end: 20100122
  35. LANSOPRAZOLE [Concomitant]
     Indication: GASTRITIS PROPHYLAXIS
     Dosage: UNK
     Route: 065
     Dates: start: 20091115, end: 20100121
  36. METHYLPREDNISOLONE SODIUM SUCCINATE [Concomitant]
     Indication: PRODUCT USED FOR UNKNOWN INDICATION
     Dosage: UNK
     Route: 065
     Dates: start: 20090909, end: 20100121
  37. VANCOMYCIN HYDROCHLORIDE [Concomitant]
     Indication: INFECTION PROPHYLAXIS
     Dosage: UNK
     Route: 065
     Dates: start: 20091205, end: 20091228
  38. SULFAMETHOXAZOLE W [Concomitant]
     Indication: INFECTION PROPHYLAXIS
     Dosage: UNK
     Route: 065
     Dates: start: 20091212, end: 20091213
  39. CEFTAZIDIME [Concomitant]
     Indication: INFECTION PROPHYLAXIS
     Dosage: UNK
     Route: 065
     Dates: start: 20091205, end: 20091212
  40. CEFTAZIDIME [Concomitant]
     Dosage: UNK
     Route: 065
     Dates: start: 20091213, end: 20091216
  41. FREEZE DRIED PLASMIN TREATED H [Concomitant]
     Indication: INFECTION PROPHYLAXIS
     Dosage: UNK
     Route: 065
     Dates: start: 20091001, end: 20100108
  42. CONCENTRATED HUMAN BLOOD PLATELET [Concomitant]
     Indication: ACUTE MYELOID LEUKAEMIA
     Dosage: UNK
     Route: 065
     Dates: start: 20090916, end: 20100122
  43. HUMAN RED BLOOD CELLS [Concomitant]
     Indication: ACUTE MYELOID LEUKAEMIA
     Dosage: UNK
     Route: 065
     Dates: start: 20090920, end: 20100122
  44. FRESH FROZEN HUMAN PLASMA [Concomitant]
     Indication: THROMBOTIC THROMBOCYTOPENIC PURPURA
     Dosage: UNK
     Route: 065
     Dates: start: 20091015, end: 20101222
  45. ANTIBIOTICS-RESISTANT LACTIC ACID BACTERIAE [Concomitant]
     Indication: PROPHYLAXIS AGAINST DIARRHOEA
     Dosage: UNK
     Route: 065
     Dates: start: 2009, end: 20091219
  46. ANTIBIOTICS-RESISTANT LACTIC ACID BACTERIAE [Concomitant]
     Dosage: UNK
     Route: 065
     Dates: start: 20091130, end: 20091212

REACTIONS (6)
  - Acute graft versus host disease [Unknown]
  - Thrombotic microangiopathy [Fatal]
  - Multi-organ failure [Fatal]
  - Melaena [Fatal]
  - Acute graft versus host disease in skin [Recovered/Resolved]
  - Sepsis [Recovered/Resolved]
